FAERS Safety Report 20823832 (Version 1)
Quarter: 2022Q2

REPORT INFORMATION
  Report Type: Spontaneous
  Country: US (occurrence: None)
  Receive Date: 20220512
  Receipt Date: 20220512
  Transmission Date: 20220721
  Serious: No
  Sender: FDA-Public Use
  Company Number: None

PATIENT
  Age: 64 Year
  Sex: Female
  Weight: 65.25 kg

DRUGS (1)
  1. NIRMATRELVIR\RITONAVIR [Suspect]
     Active Substance: NIRMATRELVIR\RITONAVIR
     Indication: COVID-19
     Dosage: TWICE A DAY ORAL?
     Route: 048
     Dates: start: 20220430, end: 20220504

REACTIONS (8)
  - SARS-CoV-2 test positive [None]
  - SARS-CoV-2 test positive [None]
  - Respiratory symptom [None]
  - Cough [None]
  - Nasal congestion [None]
  - Dyspnoea exertional [None]
  - Chest discomfort [None]
  - Pulmonary congestion [None]

NARRATIVE: CASE EVENT DATE: 20220511
